FAERS Safety Report 10186310 (Version 2)
Quarter: 2014Q2

REPORT INFORMATION
  Report Type: Spontaneous
  Country: US (occurrence: US)
  Receive Date: 20140521
  Receipt Date: 20140527
  Transmission Date: 20141212
  Serious: No
  Sender: FDA-Public Use
  Company Number: US-009507513-1405USA001246

PATIENT
  Sex: Female
  Weight: 68.27 kg

DRUGS (1)
  1. CLARITIN REDITABS 12HR [Suspect]
     Indication: HYPERSENSITIVITY
     Dosage: 5 MG, QD
     Route: 048
     Dates: start: 20140320

REACTIONS (3)
  - Fluid retention [Unknown]
  - Weight increased [Unknown]
  - Inappropriate schedule of drug administration [Unknown]
